FAERS Safety Report 23567168 (Version 4)
Quarter: 2024Q1

REPORT INFORMATION
  Report Type: Spontaneous
  Country: BE (occurrence: BE)
  Receive Date: 20240226
  Receipt Date: 20240326
  Transmission Date: 20240410
  Serious: Yes (Hospitalization, Other)
  Sender: FDA-Public Use
  Company Number: BE-ROCHE-3507689

PATIENT
  Age: 74 Year
  Sex: Male
  Weight: 85 kg

DRUGS (30)
  1. DOXORUBICIN HYDROCHLORIDE [Suspect]
     Active Substance: DOXORUBICIN HYDROCHLORIDE
     Indication: Diffuse large B-cell lymphoma
     Dosage: ON 30/JAN/2024 HE RECEIVED MOST RECENT DOSE OF STUDY DRUG (102 MG) PRIOR TO AE/SAE
     Route: 042
     Dates: start: 20231219
  2. METHYLPREDNISOLONE [Suspect]
     Active Substance: METHYLPREDNISOLONE
     Indication: Diffuse large B-cell lymphoma
     Dosage: ON 03/FEB/2024 HE RECEIVED MOST RECENT DOSE OF STUDY DRUG (80 MG) PRIOR TO AE/SAE
     Route: 048
     Dates: start: 20231219
  3. RITUXIMAB [Suspect]
     Active Substance: RITUXIMAB
     Indication: Diffuse large B-cell lymphoma
     Dosage: ON 30/JAN/2024 HE RECEIVED MOST RECENT DOSE OF STUDY DRUG (765 MG) PRIOR TO AE/SAE
     Route: 042
     Dates: start: 20231219
  4. CYCLOPHOSPHAMIDE [Suspect]
     Active Substance: CYCLOPHOSPHAMIDE
     Indication: Diffuse large B-cell lymphoma
     Dosage: ON 30/JAN/2024 HE RECEIVED MOST RECENT DOSE OF STUDY DRUG (1530 MG) PRIOR TO AE/SAE
     Route: 042
     Dates: start: 20231219
  5. GLOFITAMAB [Suspect]
     Active Substance: GLOFITAMAB
     Indication: Diffuse large B-cell lymphoma
     Dosage: ON 06/FEB/2024 HE RECEIVED MOST RECENT DOSE OF STUDY DRUG (30 MG) PRIOR TO AE/SAE
     Route: 042
     Dates: start: 20240116
  6. POLATUZUMAB VEDOTIN [Suspect]
     Active Substance: POLATUZUMAB VEDOTIN
     Indication: Diffuse large B-cell lymphoma
     Dosage: ON 30/JAN/2024 HE RECEIVED MOST RECENT DOSE OF STUDY DRUG (153 MG) PRIOR TO AE/SAE
     Route: 042
     Dates: start: 20231220
  7. ACYCLOVIR [Concomitant]
     Active Substance: ACYCLOVIR
     Dosage: 400 MG, 2X/DAY
     Dates: start: 20231211
  8. BACTRIM [Concomitant]
     Active Substance: SULFAMETHOXAZOLE\TRIMETHOPRIM
     Dosage: 1 U, 3X/WEEK
     Dates: start: 20231211
  9. ENOXAPARIN SODIUM [Concomitant]
     Active Substance: ENOXAPARIN SODIUM
     Dosage: 40 MG, 1X/DAY
     Dates: start: 20231213
  10. DAFALGAN [Concomitant]
     Active Substance: ACETAMINOPHEN
     Dosage: 1000 MG, 1X/DAY
     Dates: start: 20240109, end: 20240109
  11. DAFALGAN [Concomitant]
     Active Substance: ACETAMINOPHEN
     Dosage: 1000 MG, 1X/DAY
     Dates: start: 20240116, end: 20240116
  12. DAFALGAN [Concomitant]
     Active Substance: ACETAMINOPHEN
     Dosage: 1000 MG, 1X/DAY
     Dates: start: 20240130, end: 20240130
  13. DAFALGAN [Concomitant]
     Active Substance: ACETAMINOPHEN
     Dosage: 1000 MG, 1X/DAY
     Dates: start: 20240206, end: 20240206
  14. DEXAMETHASONE [Concomitant]
     Active Substance: DEXAMETHASONE
     Dosage: 20 MG, 1X/DAY
     Dates: start: 20240116, end: 20240116
  15. DEXAMETHASONE [Concomitant]
     Active Substance: DEXAMETHASONE
     Dosage: 20 MG, 1X/DAY
     Dates: start: 20240123, end: 20240123
  16. DEXAMETHASONE [Concomitant]
     Active Substance: DEXAMETHASONE
     Dosage: 4 MG, FREQ:.25 D
     Dates: start: 20240124, end: 20240125
  17. DEXAMETHASONE [Concomitant]
     Active Substance: DEXAMETHASONE
     Dosage: 20 MG, 1X/DAY
     Dates: start: 20240206, end: 20240206
  18. FOLIC ACID [Concomitant]
     Active Substance: FOLIC ACID
     Indication: Folate deficiency
     Dosage: 4 MG, 1X/DAY
     Dates: start: 20231208, end: 20240116
  19. FOLIC ACID [Concomitant]
     Active Substance: FOLIC ACID
     Dosage: 4 MG, 3X/WEEK
     Dates: start: 20240116
  20. LACTULOSE [Concomitant]
     Active Substance: LACTULOSE
     Dosage: UNK
     Dates: start: 20240109
  21. PANTOPRAZOLE [Concomitant]
     Active Substance: PANTOPRAZOLE
     Dosage: 20 MG, 1X/DAY
     Dates: start: 20231218
  22. ACETAMINOPHEN [Concomitant]
     Active Substance: ACETAMINOPHEN
     Indication: Pain
     Dosage: 1 G
     Dates: start: 20231213
  23. PEGFILGRASTIM [Concomitant]
     Active Substance: PEGFILGRASTIM
     Dosage: 6 MG, 1X/DAY
     Dates: start: 20240112, end: 20240112
  24. PEGFILGRASTIM [Concomitant]
     Active Substance: PEGFILGRASTIM
     Dosage: 6 MG, 1X/DAY
     Dates: start: 20240202, end: 20240202
  25. TRAMADOL [Concomitant]
     Active Substance: TRAMADOL\TRAMADOL HYDROCHLORIDE
     Indication: Pain
     Dosage: 50 MG
     Dates: start: 20240109
  26. VIREAD [Concomitant]
     Active Substance: TENOFOVIR DISOPROXIL FUMARATE
     Dosage: 245 MG, 1X/DAY
     Dates: start: 20240109
  27. LEVOCETIRIZINE DIHYDROCHLORIDE [Concomitant]
     Active Substance: LEVOCETIRIZINE DIHYDROCHLORIDE
     Dosage: 5 MG, 1X/DAY
     Dates: start: 20240109, end: 20240109
  28. LEVOCETIRIZINE DIHYDROCHLORIDE [Concomitant]
     Active Substance: LEVOCETIRIZINE DIHYDROCHLORIDE
     Dosage: 5 MG, 1X/DAY
     Dates: start: 20240116, end: 20240116
  29. LEVOCETIRIZINE DIHYDROCHLORIDE [Concomitant]
     Active Substance: LEVOCETIRIZINE DIHYDROCHLORIDE
     Dosage: 5 MG, 1X/DAY
     Dates: start: 20240130, end: 20240130
  30. LEVOCETIRIZINE DIHYDROCHLORIDE [Concomitant]
     Active Substance: LEVOCETIRIZINE DIHYDROCHLORIDE
     Dosage: 5 MG, 1X/DAY
     Dates: start: 20240206, end: 20240206

REACTIONS (2)
  - Cytokine release syndrome [Recovered/Resolved]
  - Febrile neutropenia [Recovered/Resolved]

NARRATIVE: CASE EVENT DATE: 20240207
